FAERS Safety Report 20955377 (Version 1)
Quarter: 2022Q2

REPORT INFORMATION
  Report Type: Spontaneous
  Country: GB (occurrence: GB)
  Receive Date: 20220614
  Receipt Date: 20220614
  Transmission Date: 20220721
  Serious: Yes (Death, Life-Threatening, Disabling)
  Sender: FDA-Public Use
  Company Number: None

PATIENT
  Age: 87 Year
  Sex: Male
  Weight: 71 kg

DRUGS (21)
  1. RAMIPRIL [Suspect]
     Active Substance: RAMIPRIL
     Indication: Product used for unknown indication
     Dates: start: 20220602
  2. APIXABAN [Concomitant]
     Active Substance: APIXABAN
     Dosage: 1 TABLET
     Dates: start: 20220131
  3. ATORVASTATIN [Concomitant]
     Active Substance: ATORVASTATIN
     Dosage: 1 TABLET
     Dates: start: 20220131
  4. BISOPROLOL [Concomitant]
     Active Substance: BISOPROLOL
     Dosage: 1 TABLET
     Dates: start: 20220131
  5. CAPASAL [Concomitant]
     Dosage: 1 APPLICATION
     Dates: start: 20220602
  6. COCODAMOL [Concomitant]
     Active Substance: ACETAMINOPHEN\CODEINE PHOSPHATE
     Dosage: TAKE ONE CAPSULES UP TO 4 TIMES DAILY IF REQUIR...
     Dates: start: 20220131, end: 20220306
  7. CHOLECALCIFEROL [Concomitant]
     Active Substance: CHOLECALCIFEROL
     Dosage: TAKE ONE CAPSULE EACH MORNING
     Dates: start: 20220131
  8. DOCUSATE SODIUM [Concomitant]
     Active Substance: DOCUSATE SODIUM
     Dosage: TAKE ONE IN THE MORNING AND AT TEATIME WHEN NEE...
     Dates: start: 20220131, end: 20220306
  9. IBUPROFEN [Concomitant]
     Active Substance: IBUPROFEN
     Dosage: APPLY 3 TIMES/DAY FOR 2-3WEEKS IF REQUIRED
     Dates: start: 20220131
  10. FINASTERIDE [Concomitant]
     Active Substance: FINASTERIDE
     Dosage: 1 TABLET
     Dates: start: 20220131
  11. FOLIC ACID [Concomitant]
     Active Substance: FOLIC ACID
     Dosage: 1 TABLET
     Dates: start: 20220602
  12. FUROSEMIDE [Concomitant]
     Active Substance: FUROSEMIDE
     Dosage: 1 TABLET
     Dates: start: 20220131
  13. NITROGLYCERIN [Concomitant]
     Active Substance: NITROGLYCERIN
     Dosage: 2 SPRAY
     Dates: start: 20220131
  14. HYPROMELLOSES [Concomitant]
     Active Substance: HYPROMELLOSES
     Dosage: ONE DROP INTO BOTH EYES EVERY SIX HOURS WHEN RE...
     Dates: start: 20220131, end: 20220306
  15. MOVICOL [Concomitant]
     Active Substance: POLYETHYLENE GLYCOL 3350\POTASSIUM CHLORIDE\SODIUM BICARBONATE\SODIUM CHLORIDE
     Dosage: USE ONE SACHET TWICE DAILY
     Dates: start: 20220131, end: 20220306
  16. NITROFURANTOIN [Concomitant]
     Active Substance: NITROFURANTOIN
     Dosage: LOWER UTI IN MEN - FIRST LINE: 100MG TWICE A DA...
     Dates: start: 20220328, end: 20220404
  17. OMEPRAZOLE [Concomitant]
     Active Substance: OMEPRAZOLE
     Dosage: 2 CAPSULE
     Dates: start: 20220131
  18. PIROXICAM [Concomitant]
     Active Substance: PIROXICAM
     Dosage: APPLY THREE TIMES DAILY
     Dates: start: 20220131, end: 20220306
  19. SENNA [Concomitant]
     Active Substance: SENNA LEAF\SENNOSIDES\SENNOSIDES A AND B
     Dosage: 2 TABLET
     Dates: start: 20220131
  20. CHOLECALCIFEROL [Concomitant]
     Active Substance: CHOLECALCIFEROL
     Dosage: 800 UNIT
     Dates: start: 20220602
  21. BENZALKONIUM CHLORIDE\DIMETHICONE\HYDROCORTISONE\NYSTATIN [Concomitant]
     Active Substance: BENZALKONIUM CHLORIDE\DIMETHICONE\HYDROCORTISONE\NYSTATIN
     Dosage: APPLY 3 TIMES A DAYS
     Dates: start: 20220131, end: 20220306

REACTIONS (1)
  - Anaphylactic reaction [Fatal]

NARRATIVE: CASE EVENT DATE: 20220602
